FAERS Safety Report 17225463 (Version 2)
Quarter: 2020Q1

REPORT INFORMATION
  Report Type: Spontaneous
  Country: US (occurrence: US)
  Receive Date: 20200102
  Receipt Date: 20200107
  Transmission Date: 20200409
  Serious: No
  Sender: FDA-Public Use
  Company Number: US-SA-2019SA362827

PATIENT
  Age: 29 Year

DRUGS (1)
  1. ACT GENERIC (SODIUM FLUORIDE) [Suspect]
     Active Substance: SODIUM FLUORIDE

REACTIONS (1)
  - Drug ineffective [Unknown]

NARRATIVE: CASE EVENT DATE: 20191226
